FAERS Safety Report 11592667 (Version 1)
Quarter: 2015Q4

REPORT INFORMATION
  Report Type: Spontaneous
  Country: US (occurrence: None)
  Receive Date: 20151002
  Receipt Date: 20151002
  Transmission Date: 20160304
  Serious: No
  Sender: FDA-Public Use
  Company Number: None

PATIENT
  Age: 52 Year
  Sex: Female
  Weight: 99.79 kg

DRUGS (19)
  1. MVI [Concomitant]
     Active Substance: VITAMINS
  2. FISH OIL [Concomitant]
     Active Substance: FISH OIL
  3. CALCIUM [Concomitant]
     Active Substance: CALCIUM
  4. AFRIN [Suspect]
     Active Substance: OXYMETAZOLINE
     Indication: NASAL CONGESTION
     Route: 045
  5. ATRALIN [Concomitant]
     Active Substance: TRETINOIN
  6. RISPERDAL [Concomitant]
     Active Substance: RISPERIDONE
  7. ADDERALL [Concomitant]
     Active Substance: AMPHETAMINE ASPARTATE\AMPHETAMINE SULFATE\DEXTROAMPHETAMINE SACCHARATE\DEXTROAMPHETAMINE SULFATE
  8. INDERAL LA [Concomitant]
     Active Substance: PROPRANOLOL HYDROCHLORIDE
  9. CLOBETASOL [Concomitant]
     Active Substance: CLOBETASOL
  10. VITAMIN D3 [Concomitant]
     Active Substance: CHOLECALCIFEROL
  11. ASPIRIN. [Concomitant]
     Active Substance: ASPIRIN
  12. CITALOPRAM [Concomitant]
     Active Substance: CITALOPRAM HYDROBROMIDE
  13. VYVANSE [Concomitant]
     Active Substance: LISDEXAMFETAMINE DIMESYLATE
  14. INDRAL LA [Concomitant]
  15. PROPRIONATE [Concomitant]
  16. ELIDEL [Concomitant]
     Active Substance: PIMECROLIMUS
  17. ZINC [Concomitant]
     Active Substance: ZINC\ZINC CHLORIDE
  18. TYLENOL [Concomitant]
     Active Substance: ACETAMINOPHEN
  19. VITAMIN B COMPLEX [Concomitant]
     Active Substance: CYANOCOBALAMIN\DEXPANTHENOL\NIACINAMIDE\PYRIDOXINE HYDROCHLORIDE\RIBOFLAVIN 5^-PHOSPHATE SODIUM\THIAMINE HYDROCHLORIDE\VITAMIN B COMPLEX

REACTIONS (5)
  - Rhinalgia [None]
  - Nasal discomfort [None]
  - Headache [None]
  - Burning sensation [None]
  - Sinus headache [None]

NARRATIVE: CASE EVENT DATE: 20150930
